FAERS Safety Report 12804020 (Version 1)
Quarter: 2016Q4

REPORT INFORMATION
  Report Type: Spontaneous
  Country: US (occurrence: US)
  Receive Date: 20161003
  Receipt Date: 20161003
  Transmission Date: 20170207
  Serious: No
  Sender: FDA-Public Use
  Company Number: US-ASTRAZENECA-2016SF01623

PATIENT
  Age: 2587 Week
  Sex: Male
  Weight: 99.8 kg

DRUGS (2)
  1. METFORMIN [Concomitant]
     Active Substance: METFORMIN HYDROCHLORIDE
  2. BYDUREON [Suspect]
     Active Substance: EXENATIDE
     Indication: TYPE 2 DIABETES MELLITUS
     Route: 058
     Dates: start: 20160905

REACTIONS (7)
  - Haemorrhage [Unknown]
  - Feeling abnormal [Unknown]
  - Asthenia [Unknown]
  - Sluggishness [Unknown]
  - Diabetes mellitus inadequate control [Unknown]
  - Flatulence [Unknown]
  - Contusion [Unknown]

NARRATIVE: CASE EVENT DATE: 20160905
